FAERS Safety Report 10188448 (Version 1)
Quarter: 2014Q2

REPORT INFORMATION
  Report Type: Spontaneous
  Country: US (occurrence: US)
  Receive Date: 20140522
  Receipt Date: 20140522
  Transmission Date: 20141212
  Serious: No
  Sender: FDA-Public Use
  Company Number: US-SA-2014SA047734

PATIENT
  Age: 74 Year
  Sex: Male

DRUGS (3)
  1. LANTUS SOLOSTAR [Suspect]
     Indication: TYPE 2 DIABETES MELLITUS
     Dosage: DOSE/DAILY DOSE: 60-70 UNITS
     Route: 065
     Dates: start: 20140408
  2. SOLOSTAR [Concomitant]
     Indication: DEVICE THERAPY
     Dates: start: 20140408
  3. NOVOLOG [Concomitant]

REACTIONS (2)
  - Nausea [Recovered/Resolved]
  - Blood glucose decreased [Recovered/Resolved]
